FAERS Safety Report 18311592 (Version 3)
Quarter: 2020Q4

REPORT INFORMATION
  Report Type: Spontaneous
  Country: US (occurrence: US)
  Receive Date: 20200925
  Receipt Date: 20201009
  Transmission Date: 20210113
  Serious: Yes (Other)
  Sender: FDA-Public Use
  Company Number: US-TEVA-2020-US-1830042

PATIENT
  Age: 64 Year
  Sex: Female

DRUGS (5)
  1. BALASALAZIDE DISODIUM TAB 750 MG [Concomitant]
     Indication: CROHN^S DISEASE
     Dosage: DOSAGE: 2250 MG TWICE DAILY
     Route: 048
  2. SYNTHROID 75 MG TAB MON-SAT, SUN 50 MG [Concomitant]
     Indication: HYPOTHYROIDISM
     Route: 048
  3. AJOVY [Suspect]
     Active Substance: FREMANEZUMAB-VFRM
     Indication: MIGRAINE
     Route: 065
     Dates: start: 20200911
  4. UBRELVY [Concomitant]
     Active Substance: UBROGEPANT
     Indication: MIGRAINE
     Dosage: FREQUENCY: AS NEEDED (PRN)
     Route: 048
     Dates: start: 20200710
  5. TELMISARTAN. [Concomitant]
     Active Substance: TELMISARTAN
     Indication: HYPERTENSION
     Dosage: DOSAGE: 80 MG DAILY
     Route: 048

REACTIONS (5)
  - Accidental exposure to product [Unknown]
  - Loss of consciousness [Recovered/Resolved]
  - Amnesia [Unknown]
  - Injection site pain [Unknown]
  - Poor quality device used [Unknown]

NARRATIVE: CASE EVENT DATE: 20200911
